FAERS Safety Report 8442022-X (Version None)
Quarter: 2012Q2

REPORT INFORMATION
  Report Type: 
  Country: None (occurrence: None)
  Receive Date: 20120615
  Receipt Date: 20120607
  Transmission Date: 20120825
  Serious: Yes (Hospitalization, Other)
  Sender: FDA-Public Use
  Company Number: AU-JNJFOC-20120513255

PATIENT
  Sex: Female

DRUGS (2)
  1. REMICADE [Suspect]
     Dosage: REPORTED AS 1 DOSE AND THE INFUSION PERIOD WAS 2 HOURS
     Route: 042
     Dates: start: 20120404
  2. REMICADE [Suspect]
     Indication: ANKYLOSING SPONDYLITIS
     Dosage: INFUSION PERIOD: 2 HOURS
     Route: 042
     Dates: start: 20120504

REACTIONS (5)
  - DEHYDRATION [None]
  - FIBROMYALGIA [None]
  - ARTHRALGIA [None]
  - HEADACHE [None]
  - INFLAMMATORY MARKER INCREASED [None]
